FAERS Safety Report 8698708 (Version 4)
Quarter: 2013Q1

REPORT INFORMATION
  Report Type: Spontaneous
  Country: GB (occurrence: GB)
  Receive Date: 20120802
  Receipt Date: 20130108
  Transmission Date: 20140127
  Serious: Yes (Disabling)
  Sender: FDA-Public Use
  Company Number: PHHY2012GB064943

PATIENT
  Age: 72 Year
  Sex: Male

DRUGS (5)
  1. METOPROLOL [Suspect]
     Indication: ATRIAL FIBRILLATION
     Route: 048
     Dates: start: 2010, end: 201111
  2. BISOPROLOL [Suspect]
     Indication: ATRIAL FIBRILLATION
     Dosage: 5 MG
     Dates: start: 201105, end: 20120704
  3. WARFARIN [Concomitant]
     Route: 048
  4. WARFARIN [Concomitant]
     Route: 048
  5. DILTIAZEM [Concomitant]
     Dosage: 60 MG, TID

REACTIONS (2)
  - Asthenia [Recovered/Resolved]
  - Fatigue [Recovered/Resolved]
